FAERS Safety Report 14161206 (Version 1)
Quarter: 2017Q4

REPORT INFORMATION
  Report Type: Spontaneous
  Country: US (occurrence: US)
  Receive Date: 20171106
  Receipt Date: 20171106
  Transmission Date: 20180321
  Serious: No
  Sender: FDA-Public Use
  Company Number: US-GLAXOSMITHKLINE-US2017166674

PATIENT
  Age: 70 Year
  Sex: Female

DRUGS (7)
  1. NEUPRO [Concomitant]
     Active Substance: ROTIGOTINE
  2. CLONAZEPAM. [Concomitant]
     Active Substance: CLONAZEPAM
  3. CARBIDOPA + L-DOPA [Suspect]
     Active Substance: CARBIDOPA\LEVODOPA
     Indication: PARKINSON^S DISEASE
     Dosage: UNK
  4. ENTACAPONE. [Suspect]
     Active Substance: ENTACAPONE
     Indication: PARKINSON^S DISEASE
     Dosage: UNK, QID
     Dates: end: 201710
  5. ANORO ELLIPTA [Suspect]
     Active Substance: UMECLIDINIUM BROMIDE\VILANTEROL TRIFENATATE
     Indication: CHRONIC OBSTRUCTIVE PULMONARY DISEASE
     Dosage: 1 PUFF(S), QD
     Dates: start: 20171003
  6. ENTACAPONE. [Suspect]
     Active Substance: ENTACAPONE
     Dosage: UNK, BID
     Dates: start: 20171003
  7. AZILECT [Concomitant]
     Active Substance: RASAGILINE MESYLATE

REACTIONS (7)
  - Tremor [Not Recovered/Not Resolved]
  - Memory impairment [Unknown]
  - Nervousness [Not Recovered/Not Resolved]
  - Muscle spasms [Unknown]
  - Incorrect drug administration duration [Unknown]
  - Pneumonitis [Unknown]
  - Drug dose omission [Unknown]

NARRATIVE: CASE EVENT DATE: 201710
